FAERS Safety Report 11509798 (Version 1)
Quarter: 2015Q3

REPORT INFORMATION
  Report Type: Spontaneous
  Country: US (occurrence: US)
  Receive Date: 20150915
  Receipt Date: 20150915
  Transmission Date: 20151125
  Serious: No
  Sender: FDA-Public Use
  Company Number: US-JNJFOC-20150722530

PATIENT
  Sex: Female
  Weight: 8.16 kg

DRUGS (1)
  1. INFANTS TYLENOL [Suspect]
     Active Substance: ACETAMINOPHEN
     Indication: PYREXIA
     Dosage: 1X
     Route: 048
     Dates: start: 20150729

REACTIONS (1)
  - Drug administration error [Unknown]
